FAERS Safety Report 6235489-9 (Version None)
Quarter: 2009Q2

REPORT INFORMATION
  Report Type: 
  Country: None (occurrence: None)
  Receive Date: 20090618
  Receipt Date: 20080521
  Transmission Date: 20091009
  Serious: No
  Sender: FDA-Public Use
  Company Number: US-ASTRAZENECA-2008UW10397

PATIENT
  Age: 34 Year
  Sex: Male
  Weight: 90.7 kg

DRUGS (4)
  1. RHINOCORT [Suspect]
     Indication: SINUSITIS
     Route: 045
     Dates: start: 20080501
  2. SUDAFED 12 HOUR [Concomitant]
  3. AMOXICILLIN [Concomitant]
  4. IBUPROFEN [Concomitant]

REACTIONS (1)
  - NASAL OEDEMA [None]
